FAERS Safety Report 11718933 (Version 6)
Quarter: 2016Q1

REPORT INFORMATION
  Report Type: Report from Study
  Country: US (occurrence: US)
  Receive Date: 20151109
  Receipt Date: 20160126
  Transmission Date: 20160525
  Serious: Yes (Hospitalization)
  Sender: FDA-Public Use
  Company Number: US-ACTELION-A-NJ2015-127006

PATIENT
  Age: 25 Year
  Sex: Female

DRUGS (2)
  1. VELETRI [Suspect]
     Active Substance: EPOPROSTENOL
     Dosage: 49 NG/KG, PER MIN
     Route: 042
     Dates: start: 2014
  2. VELETRI [Suspect]
     Active Substance: EPOPROSTENOL
     Indication: PULMONARY HYPERTENSION
     Dosage: 51.5 NG/KG, PER MIN
     Route: 042
     Dates: start: 20140411

REACTIONS (9)
  - Thyroid cancer [Unknown]
  - Right ventricular failure [Recovering/Resolving]
  - Hyperthyroidism [Recovering/Resolving]
  - Dyspnoea [Unknown]
  - Cardiac failure [Unknown]
  - Paracentesis [Unknown]
  - Anaemia [Unknown]
  - Platelet count decreased [Unknown]
  - Ascites [Unknown]
